FAERS Safety Report 10205731 (Version 2)
Quarter: 2014Q2

REPORT INFORMATION
  Report Type: Spontaneous
  Country: US (occurrence: US)
  Receive Date: 20140530
  Receipt Date: 20140615
  Transmission Date: 20141212
  Serious: Yes (Hospitalization)
  Sender: FDA-Public Use
  Company Number: US-009507513-1405USA009691

PATIENT
  Age: 70 Year
  Sex: Female

DRUGS (3)
  1. VYTORIN [Suspect]
     Indication: LIPIDS INCREASED
     Dosage: 1/2 OF VYTORIN 10/40 MG, UNK
     Route: 048
     Dates: start: 2014
  2. VYTORIN [Suspect]
     Dosage: UNK
     Route: 048
     Dates: end: 201312
  3. VYTORIN [Suspect]
     Dosage: 1/2 OF VYTORIN 10/40 MG, UNK
     Route: 048
     Dates: start: 20140519

REACTIONS (9)
  - Transient ischaemic attack [Unknown]
  - Decreased activity [Unknown]
  - Herpes zoster [Unknown]
  - Low density lipoprotein increased [Recovered/Resolved]
  - Arthralgia [Unknown]
  - Myalgia [Unknown]
  - Wrong technique in drug usage process [Unknown]
  - Drug prescribing error [Unknown]
  - Drug prescribing error [Unknown]
